FAERS Safety Report 10136449 (Version 1)
Quarter: 2014Q2

REPORT INFORMATION
  Report Type: Spontaneous
  Country: US (occurrence: US)
  Receive Date: 20140429
  Receipt Date: 20140429
  Transmission Date: 20141212
  Serious: Yes (Other)
  Sender: FDA-Public Use
  Company Number: US-ASTRAZENECA-2014SE27839

PATIENT
  Age: 78 Year
  Sex: Female
  Weight: 38.1 kg

DRUGS (9)
  1. SYMBICORT [Suspect]
     Indication: CHRONIC OBSTRUCTIVE PULMONARY DISEASE
     Dosage: 160/4.5MCG, 2 PUFFS BID
     Route: 055
     Dates: start: 2013
  2. PREVACID [Concomitant]
     Indication: GASTROOESOPHAGEAL REFLUX DISEASE
     Route: 048
  3. PREVACID [Concomitant]
     Indication: GASTROOESOPHAGEAL REFLUX DISEASE
     Dosage: 4 OR 5 YEARS AGO
     Route: 048
  4. EVISTA [Concomitant]
     Indication: OSTEOPOROSIS
     Route: 048
  5. EVISTA [Concomitant]
     Indication: OSTEOPOROSIS
     Dosage: FOR YEARS
     Route: 048
  6. PAROXETINE [Concomitant]
     Indication: ANTIDEPRESSANT THERAPY
     Route: 048
     Dates: start: 2011
  7. TUMS [Concomitant]
     Indication: GASTROOESOPHAGEAL REFLUX DISEASE
     Route: 048
     Dates: start: 2011
  8. VITAMIN D [Concomitant]
     Indication: VITAMIN D DECREASED
     Route: 048
  9. VITAMIN D [Concomitant]
     Indication: VITAMIN D DECREASED
     Dosage: ABOUT 2 TO 3 MONTHS AGO
     Route: 048

REACTIONS (10)
  - Joint swelling [Recovering/Resolving]
  - Arthritis [Not Recovered/Not Resolved]
  - Peripheral swelling [Not Recovered/Not Resolved]
  - Peripheral swelling [Not Recovered/Not Resolved]
  - Blister [Not Recovered/Not Resolved]
  - Feeling abnormal [Not Recovered/Not Resolved]
  - Dyspnoea [Not Recovered/Not Resolved]
  - Arthralgia [Unknown]
  - Rheumatoid arthritis [Not Recovered/Not Resolved]
  - Drug effect decreased [Not Recovered/Not Resolved]
